FAERS Safety Report 7378943-9 (Version None)
Quarter: 2011Q1

REPORT INFORMATION
  Report Type: 
  Country: None (occurrence: None)
  Receive Date: 20110328
  Receipt Date: 20110319
  Transmission Date: 20110831
  Serious: Yes (Life-Threatening)
  Sender: FDA-Public Use
  Company Number: PHHY2011CH22069

PATIENT
  Sex: Male

DRUGS (5)
  1. SERTRALINE HYDROCHLORIDE [Concomitant]
     Dosage: 150 MG, UNK
  2. CLOPIN ECO [Suspect]
     Indication: SCHIZOPHRENIA, PARANOID TYPE
     Dosage: 25
     Route: 048
     Dates: start: 20100810
  3. CLOPIN ECO [Suspect]
     Dosage: 100 MG, QD
     Route: 048
     Dates: start: 20100820
  4. CLOPIN ECO [Suspect]
     Dosage: 50 MG, QD
     Route: 048
  5. CLOPIN ECO [Suspect]
     Dosage: 600 MG, QD
     Route: 048
     Dates: start: 20100828

REACTIONS (11)
  - PULMONARY EMBOLISM [None]
  - INFLUENZA LIKE ILLNESS [None]
  - PYREXIA [None]
  - TACHYCARDIA [None]
  - ASTHENIA [None]
  - OEDEMA PERIPHERAL [None]
  - RESPIRATORY FAILURE [None]
  - DEEP VEIN THROMBOSIS [None]
  - NAUSEA [None]
  - COMA [None]
  - VENOUS THROMBOSIS LIMB [None]
